FAERS Safety Report 17721037 (Version 1)
Quarter: 2020Q2

REPORT INFORMATION
  Report Type: Spontaneous
  Country: US (occurrence: US)
  Receive Date: 20200428
  Receipt Date: 20200428
  Transmission Date: 20200714
  Serious: Yes (Other)
  Sender: FDA-Public Use
  Company Number: US-ROCHE-2341981

PATIENT
  Age: 45 Year
  Sex: Female

DRUGS (3)
  1. TRAMETINIB [Concomitant]
     Active Substance: TRAMETINIB
  2. BEVACIZUMAB. [Suspect]
     Active Substance: BEVACIZUMAB
     Indication: MALIGNANT MELANOMA
     Route: 065
  3. DABRAFENIB [Concomitant]
     Active Substance: DABRAFENIB

REACTIONS (1)
  - Gastrointestinal haemorrhage [Unknown]
